FAERS Safety Report 8053019-6 (Version None)
Quarter: 2012Q1

REPORT INFORMATION
  Report Type: 
  Country: None (occurrence: None)
  Receive Date: 20120118
  Receipt Date: 20120116
  Transmission Date: 20120608
  Serious: Yes (Other)
  Sender: FDA-Public Use
  Company Number: ES-SANOFI-AVENTIS-2012SA002612

PATIENT
  Sex: Female

DRUGS (3)
  1. DOCETAXEL [Suspect]
     Dosage: DOCETAXEL DOSE (100 MG/M2) ADMINISTERED INTRAVENOUSLY OVER 60 MIN
     Route: 042
  2. TRASTUZUMAB [Suspect]
     Dosage: LOADING DOSE OF 8 MG/KG INTRAVENOUSLY OVER 60MIN (FIRST CYCLE)
     Route: 042
  3. TRASTUZUMAB [Suspect]
     Dosage: 6 MG/KG INTRAVENOUSLY OVER 30 MIN EVERY 21 DAYS IN SUBSEQUENT CYCLES UNTIL DISEASE PROGRESSION
     Route: 042

REACTIONS (1)
  - CARDIOTOXICITY [None]
